FAERS Safety Report 8173037-7 (Version None)
Quarter: 2012Q1

REPORT INFORMATION
  Report Type: 
  Country: None (occurrence: None)
  Receive Date: 20120104
  Receipt Date: 20110915
  Transmission Date: 20120608
  Serious: No
  Sender: FDA-Public Use
  Company Number: 2011HGS-002552

PATIENT
  Sex: Female

DRUGS (1)
  1. BENLYSTA [Suspect]
     Dosage: INTRAVENOUS DRIP
     Route: 041

REACTIONS (5)
  - RENAL FAILURE CHRONIC [None]
  - RENAL PAIN [None]
  - EMOTIONAL DISTRESS [None]
  - FEELING ABNORMAL [None]
  - RENAL HAEMORRHAGE [None]
